FAERS Safety Report 7471798-3 (Version None)
Quarter: 2011Q2

REPORT INFORMATION
  Report Type: 
  Country: None (occurrence: None)
  Receive Date: 20110511
  Receipt Date: 20100506
  Transmission Date: 20111010
  Serious: No
  Sender: FDA-Public Use
  Company Number: A0859814A

PATIENT
  Age: 56 Year
  Sex: Female
  Weight: 70.9 kg

DRUGS (2)
  1. TYKERB [Suspect]
     Dosage: 1000MG PER DAY
     Route: 048
     Dates: start: 20100420, end: 20101019
  2. IMODIUM [Suspect]
     Dates: start: 20100528, end: 20101019

REACTIONS (7)
  - BLISTER [None]
  - HEADACHE [None]
  - FULL BLOOD COUNT DECREASED [None]
  - PRURITUS [None]
  - DIARRHOEA [None]
  - URINE OUTPUT DECREASED [None]
  - NAUSEA [None]
